FAERS Safety Report 18345725 (Version 1)
Quarter: 2020Q4

REPORT INFORMATION
  Report Type: Spontaneous
  Country: US (occurrence: US)
  Receive Date: 20201005
  Receipt Date: 20201005
  Transmission Date: 20210114
  Serious: No
  Sender: FDA-Public Use
  Company Number: US-ELI_LILLY_AND_COMPANY-US202009007150

PATIENT
  Sex: Female

DRUGS (1)
  1. REYVOW [Suspect]
     Active Substance: LASMIDITAN
     Indication: MIGRAINE
     Dosage: 100 MG
     Route: 065

REACTIONS (6)
  - Hypoaesthesia oral [Unknown]
  - Paraesthesia [Unknown]
  - Paraesthesia oral [Unknown]
  - Formication [Unknown]
  - Hypoaesthesia [Unknown]
  - Dizziness [Unknown]
